FAERS Safety Report 25986120 (Version 1)
Quarter: 2025Q4

REPORT INFORMATION
  Report Type: Spontaneous
  Country: EU (occurrence: EU)
  Receive Date: 20251101
  Receipt Date: 20251101
  Transmission Date: 20260118
  Serious: Yes (Hospitalization)
  Sender: TEVA
  Company Number: None

PATIENT
  Age: 68 Year
  Sex: Female
  Weight: 64 kg

DRUGS (28)
  1. NEFOPAM [Suspect]
     Active Substance: NEFOPAM
     Indication: Procedural pain
     Dosage: NEFOPAM (HYDROCHLORIDE)
     Route: 042
     Dates: start: 20250924, end: 20250924
  2. SODIUM CHLORIDE [Suspect]
     Active Substance: SODIUM CHLORIDE
     Indication: Laparotomy
     Dosage: NACL 0.9%
     Route: 042
     Dates: start: 20250924, end: 20250924
  3. REMIFENTANIL HYDROCHLORIDE [Suspect]
     Active Substance: REMIFENTANIL HYDROCHLORIDE
     Indication: Anaesthesia
     Dosage: DOSE UNKNOWN
     Route: 042
     Dates: start: 20250924, end: 20250924
  4. PROPOFOL [Suspect]
     Active Substance: PROPOFOL
     Indication: Anaesthesia
     Route: 042
     Dates: start: 20250924, end: 20250924
  5. CETIRIZINE [Suspect]
     Active Substance: CETIRIZINE HYDROCHLORIDE
     Indication: Product used for unknown indication
     Dosage: CETIRIZINE (HYDROCHLORIDE)
     Route: 065
     Dates: start: 20250925
  6. CEFTRIAXONE [Suspect]
     Active Substance: CEFTRIAXONE
     Indication: Antibiotic prophylaxis
     Dosage: ONE SINGLE SHOT, CEFTRIAXONE SODIUM
     Route: 065
     Dates: start: 20250924, end: 20250924
  7. LIDOCAINE [Suspect]
     Active Substance: LIDOCAINE
     Indication: Anaesthesia
     Route: 042
     Dates: start: 20250924, end: 20250924
  8. ROCURONIUM [Suspect]
     Active Substance: ROCURONIUM BROMIDE
     Indication: Anaesthesia
     Dosage: ROCURONIUM (BROMIDE OF)
     Route: 042
     Dates: start: 20250924, end: 20250924
  9. ESCITALOPRAM [Concomitant]
     Active Substance: ESCITALOPRAM OXALATE
     Indication: Depression
     Route: 048
  10. LIDOCAINE [Concomitant]
     Active Substance: LIDOCAINE
     Indication: Pain
     Dosage: 5%, MEDICATED PLASTER
     Route: 003
  11. KETAMINE HYDROCHLORIDE [Suspect]
     Active Substance: KETAMINE HYDROCHLORIDE
     Indication: Anaesthesia
     Route: 065
     Dates: start: 20250924, end: 20250924
  12. SUGAMMADEX [Suspect]
     Active Substance: SUGAMMADEX
     Indication: Laparotomy
     Dosage: SUGAMMADEX SODIUM
     Route: 042
     Dates: start: 20250924, end: 20250924
  13. METRONIDAZOLE [Suspect]
     Active Substance: METRONIDAZOLE
     Indication: Antibiotic prophylaxis
     Dosage: ONLY 1 SOCKET
     Route: 065
     Dates: start: 20250924, end: 20250924
  14. OLANZAPINE [Concomitant]
     Active Substance: OLANZAPINE
     Indication: Mania
     Dosage: 20MG-0-0
     Route: 048
  15. FUROSEMIDE [Concomitant]
     Active Substance: FUROSEMIDE
     Indication: Product used for unknown indication
     Dosage: THE MORNING
     Route: 048
  16. KETAMINE [Suspect]
     Active Substance: KETAMINE
     Indication: Laparotomy
     Route: 042
     Dates: start: 20250924, end: 20250924
  17. PERFALGAN [Suspect]
     Active Substance: ACETAMINOPHEN
     Indication: Pain
     Route: 042
     Dates: start: 20250924, end: 20250924
  18. PHLOROGLUCINOL [Suspect]
     Active Substance: PHLOROGLUCINOL
     Indication: Laparotomy
     Route: 042
     Dates: start: 20250924, end: 20250924
  19. KETOPROFEN [Suspect]
     Active Substance: KETOPROFEN
     Indication: Procedural pain
     Route: 042
     Dates: start: 20250924, end: 20250924
  20. POLYETHYLENE GLYCOL 4000 [Concomitant]
     Active Substance: POLYETHYLENE GLYCOL 4000
     Indication: Constipation
     Dosage: 10G-10G-10G
     Route: 048
  21. SKENAN [Concomitant]
     Active Substance: MORPHINE SULFATE
     Indication: Pain
     Dosage: 10MG-0-10MG, PROLONGED RELEASE MICROGRANULES IN CAPSULE
     Route: 048
  22. DEXAMETHASONE [Suspect]
     Active Substance: DEXAMETHASONE
     Indication: Product used for unknown indication
     Route: 042
     Dates: start: 20250924, end: 20250924
  23. NICOTINE [Concomitant]
     Active Substance: NICOTINE
     Indication: Ex-tobacco user
     Dosage: 1.5MG X 1 TO 10 PER DAY
     Route: 048
  24. RISPERIDONE [Concomitant]
     Active Substance: RISPERIDONE
     Indication: Psychiatric decompensation
     Dosage: THE EVENING,
     Route: 048
  25. TROPATEPINE HYDROCHLORIDE [Concomitant]
     Active Substance: TROPATEPINE HYDROCHLORIDE
     Indication: Neuroleptic-induced deficit syndrome
     Dosage: 10MG-0-0,
     Route: 048
  26. LACTATED RINGERS SOLUTION [Suspect]
     Active Substance: CALCIUM CHLORIDE\POTASSIUM CHLORIDE\SODIUM CHLORIDE\SODIUM LACTATE
     Indication: Laparotomy
     Route: 042
     Dates: start: 20250924, end: 20250924
  27. ACETAMINOPHEN [Concomitant]
     Active Substance: ACETAMINOPHEN
     Indication: Pain
     Dosage: IF NEEDED, 1G MORNING, NOON AND EVENING
     Route: 048
  28. MORPHINE SULFATE [Concomitant]
     Active Substance: MORPHINE SULFATE
     Indication: Pain
     Dosage: MAXIMUM 5 PER DAY IF NEEDED.
     Route: 048

REACTIONS (1)
  - Skin reaction [Recovered/Resolved]

NARRATIVE: CASE EVENT DATE: 20250925
